FAERS Safety Report 17825976 (Version 1)
Quarter: 2020Q2

REPORT INFORMATION
  Report Type: Spontaneous
  Country: AU (occurrence: AU)
  Receive Date: 20200526
  Receipt Date: 20200526
  Transmission Date: 20200714
  Serious: Yes (Hospitalization)
  Sender: FDA-Public Use
  Company Number: AU-ANIPHARMA-2020-AU-000068

PATIENT
  Age: 43 Year
  Sex: Female

DRUGS (2)
  1. MISOPROSTOL (NON-SPECIFIC) [Suspect]
     Active Substance: MISOPROSTOL
     Indication: ABORTION SPONTANEOUS
     Route: 048
  2. MIFEPRISTONE [Suspect]
     Active Substance: MIFEPRISTONE
     Indication: ABORTION SPONTANEOUS
     Route: 048

REACTIONS (1)
  - Uterine leiomyoma [Recovered/Resolved]
